FAERS Safety Report 10865339 (Version 1)
Quarter: 2015Q1

REPORT INFORMATION
  Report Type: Report from Study
  Country: US (occurrence: US)
  Receive Date: 20150224
  Receipt Date: 20150224
  Transmission Date: 20150721
  Serious: No
  Sender: FDA-Public Use
  Company Number: US-MYLANLABS-2014S1010346

PATIENT
  Sex: Female
  Weight: 65.77 kg

DRUGS (1)
  1. AMNESTEEM [Suspect]
     Active Substance: ISOTRETINOIN
     Indication: ACNE
     Dosage: UNK
     Dates: start: 20131023, end: 20140404

REACTIONS (2)
  - Myalgia [Recovered/Resolved]
  - Arthralgia [Not Recovered/Not Resolved]
